FAERS Safety Report 9955371 (Version 1)
Quarter: 2014Q1

REPORT INFORMATION
  Report Type: Report from Study
  Country: US (occurrence: US)
  Receive Date: 20140304
  Receipt Date: 20140304
  Transmission Date: 20141002
  Serious: No
  Sender: FDA-Public Use
  Company Number: US-ABBVIE-13P-163-1087954-00

PATIENT
  Age: 64 Year
  Sex: Male

DRUGS (11)
  1. HUMIRA [Suspect]
     Indication: ANKYLOSING SPONDYLITIS
     Route: 058
     Dates: start: 20130314
  2. SULFASALAZINE [Concomitant]
     Indication: PRODUCT USED FOR UNKNOWN INDICATION
  3. ALLOPURINOL [Concomitant]
     Indication: GOUT
     Dosage: 300 MG DAILY
  4. ASPIRIN [Concomitant]
     Indication: PRODUCT USED FOR UNKNOWN INDICATION
     Dosage: 81 MG DAILY
  5. EXFORGE [Concomitant]
     Indication: RENAL DISORDER
     Dosage: 5-160 ONE DAILY
  6. EXFORGE [Concomitant]
     Indication: BLOOD PRESSURE
  7. GEMFIBROZIL [Concomitant]
     Indication: BLOOD TRIGLYCERIDES
  8. JANUMET [Concomitant]
     Indication: TYPE 2 DIABETES MELLITUS
     Dosage: 50-500
  9. NIACIN [Concomitant]
     Indication: BLOOD CHOLESTEROL INCREASED
     Dosage: 250 MG 1 DAILY
  10. XALATAN [Concomitant]
     Indication: OCULAR HYPERTENSION
     Dosage: EACH EYE, AT BEDTIME
  11. METAMUCIL [Concomitant]
     Indication: HAEMORRHOIDS
     Dosage: 1 TBSP DAILY

REACTIONS (2)
  - Mobility decreased [Unknown]
  - Ankylosing spondylitis [Unknown]
